FAERS Safety Report 17447533 (Version 3)
Quarter: 2020Q2

REPORT INFORMATION
  Report Type: Report from Study
  Country: TR (occurrence: TR)
  Receive Date: 20200221
  Receipt Date: 20200519
  Transmission Date: 20200713
  Serious: Yes (Other)
  Sender: FDA-Public Use
  Company Number: TR-JAZZ-2019-TR-018361

PATIENT
  Age: 30 Year
  Sex: Female
  Weight: 53 kg

DRUGS (6)
  1. KEPPRA [Concomitant]
     Active Substance: LEVETIRACETAM
     Indication: EPILEPSY
     Dosage: 500 MILLIGRAM, TID
     Route: 048
     Dates: start: 20190506
  2. XYREM [Suspect]
     Active Substance: SODIUM OXYBATE
     Indication: NARCOLEPSY
     Dosage: 7.5 GRAM DAILY
     Route: 048
     Dates: start: 20191210
  3. XYREM [Suspect]
     Active Substance: SODIUM OXYBATE
     Indication: CATAPLEXY
     Dosage: 3 GRAM, FIRST DOSE MORNING
     Route: 048
     Dates: start: 20200428
  4. EFFEXOR [Concomitant]
     Active Substance: VENLAFAXINE HYDROCHLORIDE
     Indication: PRODUCT USED FOR UNKNOWN INDICATION
  5. XYREM [Suspect]
     Active Substance: SODIUM OXYBATE
     Dosage: 4.5 GRAM, SECOND DOSE EVENING
     Dates: start: 20200428
  6. TEGRETOL XR [Concomitant]
     Active Substance: CARBAMAZEPINE
     Indication: PRODUCT USED FOR UNKNOWN INDICATION
     Dosage: UNK
     Dates: start: 20181203

REACTIONS (25)
  - Hyperhidrosis [Not Recovered/Not Resolved]
  - Epilepsy [Recovered/Resolved]
  - Chills [Unknown]
  - Asthenia [Unknown]
  - Dyspnoea [Recovered/Resolved]
  - Somnolence [Unknown]
  - Cough [Recovered/Resolved]
  - Abdominal discomfort [Unknown]
  - Anger [Not Recovered/Not Resolved]
  - Balance disorder [Unknown]
  - Sleep disorder [Recovered/Resolved]
  - Vomiting [Not Recovered/Not Resolved]
  - Loss of consciousness [Recovered/Resolved]
  - Vertigo [Not Recovered/Not Resolved]
  - Headache [Unknown]
  - Sleep terror [Unknown]
  - Terminal insomnia [Not Recovered/Not Resolved]
  - Dizziness [Not Recovered/Not Resolved]
  - Nausea [Not Recovered/Not Resolved]
  - Restlessness [Recovered/Resolved]
  - Initial insomnia [Not Recovered/Not Resolved]
  - Hyperacusis [Recovered/Resolved]
  - Malaise [Unknown]
  - Crying [Recovered/Resolved]
  - Abnormal dreams [Not Recovered/Not Resolved]

NARRATIVE: CASE EVENT DATE: 20191210
